FAERS Safety Report 12612424 (Version 1)
Quarter: 2016Q3

REPORT INFORMATION
  Report Type: Spontaneous
  Country: US (occurrence: US)
  Receive Date: 20160801
  Receipt Date: 20160801
  Transmission Date: 20161109
  Serious: Yes (Death, Hospitalization)
  Sender: FDA-Public Use
  Company Number: US-ACTELION-A-NJ2016-139625

PATIENT
  Age: 64 Year
  Sex: Female
  Weight: 68.48 kg

DRUGS (20)
  1. OPSUMIT [Suspect]
     Active Substance: MACITENTAN
     Indication: PULMONARY ARTERIAL HYPERTENSION
     Dosage: 10 MG, QD
     Route: 048
     Dates: start: 201512, end: 201606
  2. PREDNISONE. [Concomitant]
     Active Substance: PREDNISONE
     Dosage: 5 MG, QD
     Dates: end: 20160506
  3. CYCLOBENZAPRINE [Concomitant]
     Active Substance: CYCLOBENZAPRINE
  4. PROAIR HFA [Concomitant]
     Active Substance: ALBUTEROL SULFATE
  5. CLARITIN [Concomitant]
     Active Substance: LORATADINE
     Dosage: 10 MG, QD
     Dates: end: 20160413
  6. FORTEO [Concomitant]
     Active Substance: TERIPARATIDE
     Dosage: 600 MCG, QD
  7. SULFAMETHOXAZOL W/TRIMETOPRIM [Concomitant]
     Active Substance: SULFAMETHOXAZOLE\TRIMETHOPRIM
  8. FLUOCINONIDE-E [Concomitant]
  9. FLONASE [Concomitant]
     Active Substance: FLUTICASONE PROPIONATE
     Dosage: UNK, QD
  10. PRILOSEC [Concomitant]
     Active Substance: OMEPRAZOLE MAGNESIUM
     Dosage: 40 MG, QD
  11. CYMBALTA [Concomitant]
     Active Substance: DULOXETINE HYDROCHLORIDE
     Dosage: 20 MG, BID
  12. AZATHIOPRINE. [Concomitant]
     Active Substance: AZATHIOPRINE
  13. MYCOPHENOLATE MOFETIL. [Concomitant]
     Active Substance: MYCOPHENOLATE MOFETIL
     Dosage: 1000 MG, BID
  14. MECLIZINE [Concomitant]
     Active Substance: MECLIZINE HYDROCHLORIDE
     Dosage: 25 MG, TID
  15. OXYCODONE [Concomitant]
     Active Substance: OXYCODONE
  16. HYDROXYCHLOROQUINE [Concomitant]
     Active Substance: HYDROXYCHLOROQUINE
     Dosage: 200 MG, QD
  17. OMEPRAZOLE. [Concomitant]
     Active Substance: OMEPRAZOLE
  18. NORTRIPTYLINE [Concomitant]
     Active Substance: NORTRIPTYLINE
     Dosage: 20 MG, QD
  19. GABAPENTIN. [Concomitant]
     Active Substance: GABAPENTIN
     Dosage: 100 MG, TID
  20. LEVOFLOXACIN. [Concomitant]
     Active Substance: LEVOFLOXACIN

REACTIONS (21)
  - Wheezing [Unknown]
  - Photosensitivity reaction [Unknown]
  - Rhinorrhoea [Unknown]
  - Peripheral swelling [Unknown]
  - Respiratory failure [Fatal]
  - Night sweats [Unknown]
  - Weight increased [Unknown]
  - Confusional state [Unknown]
  - Cough [Fatal]
  - Dyspnoea [Fatal]
  - Crepitations [Unknown]
  - Cardiogenic shock [Unknown]
  - Diarrhoea [Unknown]
  - Skin hypopigmentation [Unknown]
  - Decreased appetite [Unknown]
  - Dizziness [Unknown]
  - Pulseless electrical activity [Fatal]
  - Septic shock [Unknown]
  - Pneumonia [Fatal]
  - Loss of consciousness [Unknown]
  - Paranasal sinus discomfort [Unknown]

NARRATIVE: CASE EVENT DATE: 20160610
